FAERS Safety Report 24910028 (Version 1)
Quarter: 2025Q1

REPORT INFORMATION
  Report Type: Spontaneous
  Country: US (occurrence: US)
  Receive Date: 20250131
  Receipt Date: 20250131
  Transmission Date: 20250408
  Serious: Yes (Other)
  Sender: HIKMA
  Company Number: US-HIKMA PHARMACEUTICALS USA INC.-US-H14001-25-00903

PATIENT

DRUGS (4)
  1. METHOTREXATE [Suspect]
     Active Substance: METHOTREXATE
     Indication: Rheumatoid arthritis
     Dosage: 3 DOSAGE FORM, WEEKLY
     Route: 048
  2. METHOTREXATE [Suspect]
     Active Substance: METHOTREXATE
     Route: 065
  3. XELJANZ XR [Suspect]
     Active Substance: TOFACITINIB CITRATE
     Indication: Rheumatoid arthritis
     Dosage: 1 DOSAGE FORM, QD
     Route: 048
  4. XELJANZ XR [Suspect]
     Active Substance: TOFACITINIB CITRATE
     Dosage: 1 DOSAGE FORM, QOD
     Route: 048

REACTIONS (16)
  - Polyarthritis [Unknown]
  - Arthritis [Unknown]
  - Arthralgia [Unknown]
  - Pain in extremity [Unknown]
  - Gait disturbance [Unknown]
  - Cough [Unknown]
  - Fatigue [Not Recovered/Not Resolved]
  - Amnesia [Unknown]
  - Joint stiffness [Unknown]
  - Grip strength decreased [Unknown]
  - COVID-19 [Recovered/Resolved]
  - Bursitis [Unknown]
  - Eye disorder [Unknown]
  - Synovitis [Not Recovered/Not Resolved]
  - Osteoarthritis [Unknown]
  - Spinal pain [Unknown]

NARRATIVE: CASE EVENT DATE: 20060927
